FAERS Safety Report 6700735-1 (Version None)
Quarter: 2010Q2

REPORT INFORMATION
  Report Type: 
  Country: None (occurrence: None)
  Receive Date: 20100426
  Receipt Date: 20100410
  Transmission Date: 20101027
  Serious: Yes (Hospitalization)
  Sender: FDA-Public Use
  Company Number: UTC-000988

PATIENT
  Age: 76 Year
  Sex: Male
  Weight: 55 kg

DRUGS (6)
  1. REMODULIN [Suspect]
     Indication: PULMONARY HYPERTENSION
     Dosage: 57.6 UG/KG(0.04 UG/KG, 1 IN 1 MIN), SUBCUTANEOUS
     Route: 058
     Dates: start: 20091001
  2. SINTROM [Concomitant]
  3. LISINOPRIL [Concomitant]
  4. HCT (HYDROCHLOROTHIAIZDE) [Concomitant]
  5. PANTOPRAZOLE SODIUM [Concomitant]
  6. LASIX [Concomitant]

REACTIONS (6)
  - DIARRHOEA [None]
  - GENERAL PHYSICAL HEALTH DETERIORATION [None]
  - HYPOPHAGIA [None]
  - NAUSEA [None]
  - PAIN [None]
  - VOMITING [None]
